FAERS Safety Report 5699223-3 (Version None)
Quarter: 2008Q2

REPORT INFORMATION
  Report Type: 
  Country: None (occurrence: None)
  Receive Date: 20080408
  Receipt Date: 20080328
  Transmission Date: 20081010
  Serious: No
  Sender: FDA-Public Use
  Company Number: APP200800046

PATIENT
  Age: 59 Year
  Sex: Male
  Weight: 78 kg

DRUGS (13)
  1. HEPARIN SODIUM INJECTION [Suspect]
     Indication: HAEMODIALYSIS
     Dosage: 3000 USP UNITS, ONCE, INTRAVENOUS BOLUS
     Route: 040
     Dates: start: 20080119, end: 20080119
  2. PHOSLO [Concomitant]
  3. ZENOFER [Concomitant]
  4. METOPROLOL TARTRATE [Concomitant]
  5. ISOSORBIDE (ISOSORBIDE) [Concomitant]
  6. LOVASTATIN [Concomitant]
  7. PRILOSEC [Concomitant]
  8. ALLOPURINOL [Concomitant]
  9. ASPIRIN [Concomitant]
  10. INSULIN NOVOLOG (INSULIN) [Concomitant]
  11. REGLAN [Concomitant]
  12. ZEMPLAR [Concomitant]
  13. HEPARIN SODIUM INJECTION [Suspect]

REACTIONS (7)
  - ANAPHYLACTIC REACTION [None]
  - DYSPNOEA [None]
  - FEELING HOT [None]
  - GASTROINTESTINAL MOTILITY DISORDER [None]
  - HYPERHIDROSIS [None]
  - HYPOTENSION [None]
  - MUSCULOSKELETAL PAIN [None]
